FAERS Safety Report 4632228-X (Version None)
Quarter: 2005Q2

REPORT INFORMATION
  Report Type: 
  Country: None (occurrence: None)
  Receive Date: 20050411
  Receipt Date: 20041203
  Transmission Date: 20051028
  Serious: Yes (Hospitalization)
  Sender: FDA-Public Use
  Company Number: ES-ROCHE-388314

PATIENT
  Age: 36 Year
  Sex: Male

DRUGS (5)
  1. PEGASYS [Suspect]
     Indication: CHRONIC HEPATITIS
     Route: 065
     Dates: start: 20030117, end: 20030529
  2. REBETOL [Suspect]
     Indication: CHRONIC HEPATITIS
     Route: 048
     Dates: start: 20030117, end: 20030529
  3. DIDEHYDROTHYMIDINE [Concomitant]
     Indication: HIV INFECTION
     Dosage: REPORTED AS DIDEHYDROTHYMIDINE 80.
     Dates: start: 20030303, end: 20030608
  4. 3TC [Concomitant]
     Indication: HIV INFECTION
     Dosage: REPORTED AS 3TC 300.
     Dates: start: 20030303, end: 20030608
  5. EFAVIRENZ [Concomitant]
     Indication: HIV INFECTION
     Dosage: REPORTED AS EFAVIRENZ 600.
     Dates: start: 20030303, end: 20030608

REACTIONS (6)
  - CARDIAC TAMPONADE [None]
  - CARDIOMEGALY [None]
  - HEPATOSPLENOMEGALY [None]
  - PERICARDIAL HAEMORRHAGE [None]
  - PLEURAL EFFUSION [None]
  - PYREXIA [None]
